FAERS Safety Report 5237646-7 (Version None)
Quarter: 2007Q1

REPORT INFORMATION
  Report Type: 
  Country: None (occurrence: None)
  Receive Date: 20070214
  Receipt Date: 20070212
  Transmission Date: 20070707
  Serious: Yes (Hospitalization)
  Sender: FDA-Public Use
  Company Number: AU-BAYER-200710940GDS

PATIENT
  Age: 41 Year
  Sex: Female
  Weight: 77 kg

DRUGS (6)
  1. DACARBAZINE [Suspect]
     Indication: MALIGNANT MELANOMA STAGE IV
     Route: 042
     Dates: start: 20061211
  2. BOSENTAN 500 MG B.I.D. VS PLACEBO [Suspect]
     Indication: MALIGNANT MELANOMA STAGE IV
     Dosage: TOTAL DAILY DOSE: 1000 MG  UNIT DOSE: 500 MG
     Route: 048
     Dates: start: 20061211
  3. DEXAMETHASONE [Concomitant]
     Indication: DRUG USE FOR UNKNOWN INDICATION
     Route: 065
     Dates: start: 20061211
  4. FRUSEMIDE [Concomitant]
     Indication: DRUG USE FOR UNKNOWN INDICATION
     Route: 065
  5. SPIRONOLACTONE [Concomitant]
     Indication: DRUG USE FOR UNKNOWN INDICATION
     Route: 065
  6. FENTANYL [Concomitant]
     Indication: DRUG USE FOR UNKNOWN INDICATION
     Route: 065

REACTIONS (1)
  - FEBRILE NEUTROPENIA [None]
